FAERS Safety Report 11778625 (Version 1)
Quarter: 2015Q4

REPORT INFORMATION
  Report Type: Spontaneous
  Country: US (occurrence: US)
  Receive Date: 20151125
  Receipt Date: 20151125
  Transmission Date: 20160304
  Serious: Yes (Other)
  Sender: FDA-Public Use
  Company Number: US-TEVA-611048USA

PATIENT
  Age: 40 Year
  Sex: Male

DRUGS (1)
  1. ZECUITY [Suspect]
     Active Substance: SUMATRIPTAN SUCCINATE
     Indication: MIGRAINE
     Dosage: 1 PATCH
     Route: 062
     Dates: start: 20151001, end: 20151118

REACTIONS (2)
  - Application site burn [Recovered/Resolved]
  - Hypersensitivity [Recovered/Resolved]
